FAERS Safety Report 10884882 (Version 3)
Quarter: 2015Q2

REPORT INFORMATION
  Report Type: Report from Study
  Country: US (occurrence: US)
  Receive Date: 20150304
  Receipt Date: 20150416
  Transmission Date: 20150821
  Serious: Yes (Hospitalization)
  Sender: FDA-Public Use
  Company Number: US-EISAI MEDICAL RESEARCH-EC-2015-004552

PATIENT
  Age: 73 Year
  Sex: Female
  Weight: 51.3 kg

DRUGS (12)
  1. VITAMIN C [Concomitant]
     Active Substance: ASCORBIC ACID
  2. LOSARTAN POTASSIUM. [Concomitant]
     Active Substance: LOSARTAN POTASSIUM
  3. POTASSIUM [Concomitant]
     Active Substance: POTASSIUM
  4. LENVATINIB [Suspect]
     Active Substance: LENVATINIB
     Indication: LUNG ADENOCARCINOMA
     Route: 048
     Dates: start: 20150204, end: 20150210
  5. VITAMIN D [Concomitant]
     Active Substance: CHOLECALCIFEROL
  6. LENVATINIB [Suspect]
     Active Substance: LENVATINIB
     Route: 048
     Dates: start: 20150220, end: 20150226
  7. AMLODIPINE BESYLATE. [Concomitant]
     Active Substance: AMLODIPINE BESYLATE
  8. FISH OIL [Concomitant]
     Active Substance: FISH OIL
  9. FOLIC ACID. [Concomitant]
     Active Substance: FOLIC ACID
  10. LIPITOR [Concomitant]
     Active Substance: ATORVASTATIN CALCIUM
  11. SYNTHROID [Concomitant]
     Active Substance: LEVOTHYROXINE SODIUM
  12. MULTIVITAMIN [Concomitant]
     Active Substance: VITAMINS

REACTIONS (1)
  - Transient ischaemic attack [Recovered/Resolved]

NARRATIVE: CASE EVENT DATE: 20150301
